FAERS Safety Report 9548505 (Version 1)
Quarter: 2013Q2

REPORT INFORMATION
  Report Type: Spontaneous
  Country: US (occurrence: None)
  Receive Date: 20130627
  Receipt Date: 20130627
  Transmission Date: 20140414
  Serious: Yes (Other)
  Sender: FDA-Public Use
  Company Number: 1000044778

PATIENT
  Age: 47 Year
  Sex: Female

DRUGS (11)
  1. LINZESS [Suspect]
     Dates: start: 20130426
  2. TAMOXIFEN (TAMOXIFEN)(TAMOXIFEN) [Concomitant]
  3. TRICOR (FENOFIBRATE) (FENOFIBRATE) [Concomitant]
  4. PERCOCET (OXYCODONE, ACETAMINOPHEN) (OXYCODONE, ACETAMINOPHEN) [Concomitant]
  5. KLONOPIN [Concomitant]
  6. AMBIEN (ZOLPIDEM TARTRATE) (ZOLPIDEM TARTRATE) [Concomitant]
  7. KLOR-CON (POTASSIUM CHLORIDE) (POTASSIUM CHLORIDE) [Concomitant]
  8. DEXILANT (DEXLANSOPRAZOLE) (DEXLANPRAZOLE) [Concomitant]
  9. LEVOTHYROXINE (LEVOTHYROXINE SODIUM) (LEVOTHYROXINE SODIUM) [Concomitant]
  10. HYDROCHLOROTHIAZIDE [Suspect]
  11. ATENOLOL [Concomitant]

REACTIONS (1)
  - Pruritus [None]
